FAERS Safety Report 5835579-6 (Version None)
Quarter: 2008Q3

REPORT INFORMATION
  Report Type: 
  Country: None (occurrence: None)
  Receive Date: 20080806
  Receipt Date: 20080805
  Transmission Date: 20090109
  Serious: Yes (Other)
  Sender: FDA-Public Use
  Company Number: A0730633A

PATIENT
  Sex: Female

DRUGS (1)
  1. ALLI [Suspect]

REACTIONS (11)
  - ABDOMINAL DISTENSION [None]
  - APATHY [None]
  - FATIGUE [None]
  - FOOD CRAVING [None]
  - GASTROINTESTINAL DISORDER [None]
  - HYPOTHYROIDISM [None]
  - MENSTRUATION IRREGULAR [None]
  - SOMNOLENCE [None]
  - THYROID DISORDER [None]
  - WEIGHT FLUCTUATION [None]
  - WEIGHT INCREASED [None]
